FAERS Safety Report 7591977-4 (Version None)
Quarter: 2011Q3

REPORT INFORMATION
  Report Type: 
  Country: None (occurrence: None)
  Receive Date: 20110706
  Receipt Date: 20110627
  Transmission Date: 20111222
  Serious: Yes (Other)
  Sender: FDA-Public Use
  Company Number: US-US-EMD SERONO, INC.-7066589

PATIENT
  Sex: Female

DRUGS (12)
  1. PRISTIQ [Concomitant]
     Indication: DEPRESSION
  2. REBIF [Suspect]
     Route: 058
     Dates: start: 20100907
  3. ZANAFLEX [Concomitant]
     Indication: MULTIPLE SCLEROSIS
  4. VALIUM [Concomitant]
  5. CLONIDINE [Concomitant]
  6. ZIAC [Concomitant]
     Indication: HYPERTENSION
     Dates: start: 20060101
  7. CRESTOR [Concomitant]
  8. LASIX [Concomitant]
     Indication: FLUID RETENTION
     Dates: start: 20060101, end: 20110501
  9. REBIF [Suspect]
     Indication: MULTIPLE SCLEROSIS
  10. PREVACID [Concomitant]
  11. LASIX [Concomitant]
     Dates: start: 20110501
  12. AVAPRO [Concomitant]

REACTIONS (3)
  - RENAL DISORDER [None]
  - INFECTION [None]
  - MULTIPLE SCLEROSIS RELAPSE [None]
